FAERS Safety Report 6706329-6 (Version None)
Quarter: 2010Q2

REPORT INFORMATION
  Report Type: 
  Country: None (occurrence: None)
  Receive Date: 20100503
  Receipt Date: 20100426
  Transmission Date: 20101027
  Serious: Yes (Hospitalization)
  Sender: FDA-Public Use
  Company Number: TR-ELI_LILLY_AND_COMPANY-TR201004006794

PATIENT
  Sex: Female

DRUGS (5)
  1. HUMALOG [Suspect]
     Indication: DIABETES MELLITUS
     Dosage: UNK UNK, 3/D
     Route: 058
     Dates: start: 20100201
  2. HUMALOG [Suspect]
     Dosage: 10 U, EACH NOON
     Route: 058
     Dates: start: 20100201
  3. HUMALOG [Suspect]
     Dosage: 14 U, EACH EVENING
     Route: 058
     Dates: start: 20100201
  4. HUMULIN N [Suspect]
     Indication: DIABETES MELLITUS
     Dosage: UNK UNK, 2/D
     Route: 058
     Dates: start: 20100201
  5. HUMULIN N [Suspect]
     Dosage: 14 U, EACH EVENING
     Route: 058
     Dates: start: 20100201

REACTIONS (2)
  - ABDOMINAL PAIN [None]
  - DRUG EXPOSURE DURING PREGNANCY [None]
